FAERS Safety Report 16922420 (Version 1)
Quarter: 2019Q4

REPORT INFORMATION
  Report Type: Spontaneous
  Country: CN (occurrence: CN)
  Receive Date: 20191016
  Receipt Date: 20191016
  Transmission Date: 20200122
  Serious: Yes (Other)
  Sender: FDA-Public Use
  Company Number: CN-CHEPLA-C20192518_05

PATIENT
  Age: 1 Year
  Sex: Male

DRUGS (15)
  1. ALPROSTADIL. [Suspect]
     Active Substance: ALPROSTADIL
     Indication: PROPHYLAXIS
     Route: 065
  2. BUSULFAN. [Suspect]
     Active Substance: BUSULFAN
     Indication: STEM CELL TRANSPLANT
     Dosage: 4.8-14.4 MG/KG
     Route: 065
  3. CYCLOPHOSPHAMIDE. [Suspect]
     Active Substance: CYCLOPHOSPHAMIDE
     Indication: BONE MARROW CONDITIONING REGIMEN
     Dosage: 80-120MG/KG
     Route: 065
  4. METHOTREXATE. [Suspect]
     Active Substance: METHOTREXATE
     Indication: PROPHYLAXIS AGAINST GRAFT VERSUS HOST DISEASE
     Route: 065
  5. MITOXANTRONE [Suspect]
     Active Substance: MITOXANTRONE HYDROCHLORIDE
     Indication: BONE MARROW CONDITIONING REGIMEN
     Dosage: 30-50 MG/M2
     Route: 065
  6. FLUDARABINE [Suspect]
     Active Substance: FLUDARABINE PHOSPHATE
     Indication: BONE MARROW CONDITIONING REGIMEN
     Dosage: 120-200 MG/M2
     Route: 065
  7. URSODEOXYCHOLIC ACID [Suspect]
     Active Substance: URSODIOL
     Indication: PROPHYLAXIS
     Route: 065
  8. GANCICLOVIR. [Suspect]
     Active Substance: GANCICLOVIR
     Indication: ANTIVIRAL PROPHYLAXIS
     Route: 065
  9. ACYCLOVIR. [Suspect]
     Active Substance: ACYCLOVIR
     Indication: ANTIVIRAL PROPHYLAXIS
     Route: 065
  10. ATG [Suspect]
     Active Substance: LAPINE T-LYMPHOCYTE IMMUNE GLOBULIN
     Indication: BONE MARROW CONDITIONING REGIMEN
     Route: 065
  11. ETOPOSIDE. [Suspect]
     Active Substance: ETOPOSIDE
     Indication: BONE MARROW CONDITIONING REGIMEN
     Dosage: 300 MG/M2
     Route: 065
  12. GRANULOCYTE COLONY STIMULATING FACTOR [Suspect]
     Active Substance: GRANULOCYTE COLONY-STIMULATING FACTOR NOS
     Indication: STEM CELL TRANSPLANT
     Dosage: 5 UG/(KG.D)
     Route: 058
  13. ARA-C [Suspect]
     Active Substance: CYTARABINE
     Indication: BONE MARROW CONDITIONING REGIMEN
     Dosage: 6-25 G/M2
     Route: 065
  14. MYCOPHENOLATE MOFETIL. [Suspect]
     Active Substance: MYCOPHENOLATE MOFETIL
     Indication: PROPHYLAXIS AGAINST GRAFT VERSUS HOST DISEASE
     Route: 065
  15. SULFAMETHOXAZOL [Suspect]
     Active Substance: SULFAMETHOXAZOLE
     Indication: INFECTION PROPHYLAXIS
     Route: 065

REACTIONS (2)
  - Epilepsy [Recovering/Resolving]
  - Gastrointestinal infection [Recovered/Resolved]
